FAERS Safety Report 12689007 (Version 6)
Quarter: 2019Q4

REPORT INFORMATION
  Report Type: Report from Study
  Country: TW (occurrence: TW)
  Receive Date: 20160826
  Receipt Date: 20191016
  Transmission Date: 20200122
  Serious: Yes (Hospitalization, Other)
  Sender: FDA-Public Use
  Company Number: PHHY2016TW115034

PATIENT
  Age: 50 Year
  Sex: Female
  Weight: 67 kg

DRUGS (14)
  1. TASIGNA [Suspect]
     Active Substance: NILOTINIB
     Indication: CHRONIC MYELOID LEUKAEMIA
     Dosage: 600 MG, UNK
     Route: 048
     Dates: start: 20150930, end: 20160719
  2. XANAX [Concomitant]
     Active Substance: ALPRAZOLAM
     Indication: PROPHYLAXIS
     Dosage: 0.5 MG
     Route: 048
     Dates: start: 20151209, end: 20160106
  3. NEOMYCIN. [Concomitant]
     Active Substance: NEOMYCIN
     Dosage: 20 G
     Route: 061
     Dates: start: 20180509
  4. SPRYCEL [Concomitant]
     Active Substance: DASATINIB
     Indication: CHRONIC MYELOID LEUKAEMIA
     Dosage: 100 MG, UNK
     Route: 048
     Dates: start: 20160720, end: 20160819
  5. HIDROXYUREA [Concomitant]
     Indication: CHRONIC MYELOID LEUKAEMIA
     Dosage: 500 MG, UNK
     Route: 048
     Dates: start: 20150922, end: 20150930
  6. ALLOPURINOL. [Concomitant]
     Active Substance: ALLOPURINOL
     Indication: PROPHYLAXIS
     Dosage: 100 MG
     Route: 048
     Dates: start: 20150922, end: 20151014
  7. RHIN [Concomitant]
     Dosage: 1 DF
     Route: 048
     Dates: start: 20180207, end: 20180214
  8. TASIGNA [Suspect]
     Active Substance: NILOTINIB
     Dosage: 450 OT
     Route: 048
     Dates: start: 20160810
  9. DAILYCARE ACTIBEST [Concomitant]
     Indication: PROPHYLAXIS
     Dosage: 1 DF, UNK
     Route: 048
     Dates: start: 20170419, end: 20170612
  10. RHIN [Concomitant]
     Indication: PROPHYLAXIS
     Dosage: 1 DF
     Route: 048
     Dates: start: 20171025, end: 20171101
  11. NEOMYCIN. [Concomitant]
     Active Substance: NEOMYCIN
     Indication: PROPHYLAXIS
     Dosage: 16 G
     Route: 061
     Dates: start: 20171220, end: 20180508
  12. METOCLOPRAMIDE. [Concomitant]
     Active Substance: METOCLOPRAMIDE
     Indication: PROPHYLAXIS
     Dosage: 5 MG, UNK
     Route: 048
     Dates: start: 20160421, end: 20160428
  13. CLONAZEPAM. [Concomitant]
     Active Substance: CLONAZEPAM
     Indication: PROPHYLAXIS
     Dosage: 0.5 MG, UNK
     Route: 048
     Dates: start: 20151111, end: 20151125
  14. CHLORPHENIRAMINE. [Concomitant]
     Active Substance: CHLORPHENIRAMINE
     Indication: PROPHYLAXIS
     Dosage: 5 MG, UNK
     Route: 065
     Dates: start: 20160627, end: 20160627

REACTIONS (6)
  - Arrhythmia [Not Recovered/Not Resolved]
  - Cardiac valve disease [Not Recovered/Not Resolved]
  - Chest discomfort [Unknown]
  - Coronary artery disease [Not Recovered/Not Resolved]
  - Palpitations [Unknown]
  - Back pain [Unknown]

NARRATIVE: CASE EVENT DATE: 20160502
